FAERS Safety Report 4361540-7 (Version None)
Quarter: 2004Q2

REPORT INFORMATION
  Report Type: 
  Country: None (occurrence: None)
  Receive Date: 20040521
  Receipt Date: 20040421
  Transmission Date: 20050107
  Serious: No
  Sender: FDA-Public Use
  Company Number: US-GLAXOSMITHKLINE-A0507937A

PATIENT
  Age: 65 Year
  Sex: Male

DRUGS (5)
  1. ZYBAN [Suspect]
     Dosage: 150MG TWICE PER DAY
     Route: 048
     Dates: start: 20040401, end: 20040401
  2. ALTACE [Concomitant]
  3. ATENOLOL [Concomitant]
  4. ZOCOR [Concomitant]
  5. XANAX [Concomitant]

REACTIONS (6)
  - DERMATITIS EXFOLIATIVE [None]
  - DRY MOUTH [None]
  - DRY SKIN [None]
  - HAEMORRHAGE URINARY TRACT [None]
  - RASH [None]
  - RASH PAPULAR [None]
